FAERS Safety Report 17300328 (Version 1)
Quarter: 2020Q1

REPORT INFORMATION
  Report Type: Spontaneous
  Country: US (occurrence: US)
  Receive Date: 20200122
  Receipt Date: 20200122
  Transmission Date: 20200409
  Serious: No
  Sender: FDA-Public Use
  Company Number: US-ALLERGAN-1901058US

PATIENT
  Age: 82 Year
  Sex: Female

DRUGS (4)
  1. OTC EYE DROP [Concomitant]
     Indication: EYE IRRITATION
     Dosage: UNK, TID
     Route: 047
  2. HEART PILL [Concomitant]
     Indication: ATRIAL FIBRILLATION
     Dosage: UNK
  3. RESTASIS [Suspect]
     Active Substance: CYCLOSPORINE
     Indication: DRY EYE
     Dosage: 2 GTT, BID
     Route: 047
     Dates: start: 2017
  4. OTC EYE DROP [Concomitant]
     Indication: DRY EYE

REACTIONS (4)
  - Corneal abrasion [Not Recovered/Not Resolved]
  - Eye irritation [Not Recovered/Not Resolved]
  - Product administration error [Unknown]
  - Product storage error [Unknown]

NARRATIVE: CASE EVENT DATE: 2018
